FAERS Safety Report 12965739 (Version 1)
Quarter: 2016Q4

REPORT INFORMATION
  Report Type: Spontaneous
  Country: US (occurrence: US)
  Receive Date: 20161122
  Receipt Date: 20161122
  Transmission Date: 20170207
  Serious: No
  Sender: FDA-Public Use
  Company Number: US-009507513-1611USA005643

PATIENT
  Sex: Male

DRUGS (2)
  1. PROVENTIL [Suspect]
     Active Substance: ALBUTEROL
     Indication: WHEEZING
  2. PROVENTIL [Suspect]
     Active Substance: ALBUTEROL
     Indication: DYSPNOEA
     Dosage: 3 ML (2.5MG) EVERY 2 HOURS AS NEEDED
     Route: 055

REACTIONS (1)
  - Product use issue [Unknown]
